FAERS Safety Report 5524389-5 (Version None)
Quarter: 2007Q4

REPORT INFORMATION
  Report Type: 
  Country: None (occurrence: None)
  Receive Date: 20071121
  Receipt Date: 20071113
  Transmission Date: 20080405
  Serious: Yes (Other)
  Sender: FDA-Public Use
  Company Number: US-PFIZER INC-2007096626

PATIENT
  Age: 87 Year
  Sex: Male
  Weight: 66.7 kg

DRUGS (2)
  1. VIAGRA [Suspect]
     Indication: ERECTILE DYSFUNCTION
  2. COUMADIN [Concomitant]

REACTIONS (2)
  - BACTERIAL INFECTION [None]
  - VISION BLURRED [None]
